FAERS Safety Report 16022542 (Version 2)
Quarter: 2019Q1

REPORT INFORMATION
  Report Type: Report from Study
  Country: US (occurrence: US)
  Receive Date: 20190301
  Receipt Date: 20190311
  Transmission Date: 20190418
  Serious: Yes (Death, Other)
  Sender: FDA-Public Use
  Company Number: US-GILEAD-2019-0394244

PATIENT
  Age: 71 Year
  Sex: Female
  Weight: 83.45 kg

DRUGS (25)
  1. AMBRISENTAN [Suspect]
     Active Substance: AMBRISENTAN
     Indication: PRODUCT USED FOR UNKNOWN INDICATION
     Dosage: 5 MG, QD
     Route: 065
     Dates: start: 20110817
  2. REVATIO [Concomitant]
     Active Substance: SILDENAFIL CITRATE
  3. CLARITHROMYCIN. [Concomitant]
     Active Substance: CLARITHROMYCIN
  4. VITAMIN C [Concomitant]
     Active Substance: ASCORBIC ACID
  5. ALBUTEROL SULFATE. [Concomitant]
     Active Substance: ALBUTEROL SULFATE
  6. ACETYLCYSTEINE. [Concomitant]
     Active Substance: ACETYLCYSTEINE
  7. FLEXERIL [CEFIXIME] [Concomitant]
     Active Substance: CEFIXIME
  8. K-DUR [Concomitant]
     Active Substance: POTASSIUM CHLORIDE
  9. IRON [Concomitant]
     Active Substance: IRON
  10. SINGULAIR [Concomitant]
     Active Substance: MONTELUKAST SODIUM
  11. ATROVENT [Concomitant]
     Active Substance: IPRATROPIUM BROMIDE
  12. METOPROLOL TARTRATE. [Concomitant]
     Active Substance: METOPROLOL TARTRATE
  13. VITAMIN D [Concomitant]
     Active Substance: CHOLECALCIFEROL
  14. GLIPIZIDE. [Concomitant]
     Active Substance: GLIPIZIDE
  15. COUMADINE [Concomitant]
     Active Substance: WARFARIN SODIUM
  16. DOK [Concomitant]
     Active Substance: DOCUSATE SODIUM
  17. WARFARIN [Concomitant]
     Active Substance: WARFARIN
  18. VITAMIN B12 [COBAMAMIDE] [Concomitant]
  19. SPIRONOLACTONE. [Concomitant]
     Active Substance: SPIRONOLACTONE
  20. FUROSEMIDE. [Concomitant]
     Active Substance: FUROSEMIDE
  21. SIMVASTATIN. [Concomitant]
     Active Substance: SIMVASTATIN
  22. LATANOPROST. [Concomitant]
     Active Substance: LATANOPROST
  23. RESTASIS [Concomitant]
     Active Substance: CYCLOSPORINE
  24. XANAX [Concomitant]
     Active Substance: ALPRAZOLAM
  25. BUDESONIDE. [Concomitant]
     Active Substance: BUDESONIDE

REACTIONS (1)
  - Death [Fatal]

NARRATIVE: CASE EVENT DATE: 201902
